FAERS Safety Report 5166318-2 (Version None)
Quarter: 2006Q4

REPORT INFORMATION
  Report Type: 
  Country: None (occurrence: None)
  Receive Date: 20061129
  Receipt Date: 20061128
  Transmission Date: 20070319
  Serious: Yes (Hospitalization, Disabling)
  Sender: FDA-Public Use
  Company Number: SP01027

PATIENT
  Age: 54 Year
  Sex: Female

DRUGS (2)
  1. OSMOPREP [Suspect]
     Indication: COLONOSCOPY
     Dosage: 32 TABLETS (24 TABLETS ON 02NOV; 8 TABLETS ON 03NOV), ORAL
     Route: 048
     Dates: start: 20061102, end: 20061103
  2. OSMOPREP [Suspect]
     Indication: PREOPERATIVE CARE
     Dosage: 32 TABLETS (24 TABLETS ON 02NOV; 8 TABLETS ON 03NOV), ORAL
     Route: 048
     Dates: start: 20061102, end: 20061103

REACTIONS (2)
  - CALCULUS URETERIC [None]
  - HAEMATURIA [None]
